FAERS Safety Report 11604106 (Version 1)
Quarter: 2015Q4

REPORT INFORMATION
  Report Type: Spontaneous
  Country: US (occurrence: None)
  Receive Date: 20151006
  Receipt Date: 20151006
  Transmission Date: 20160304
  Serious: Yes (Hospitalization)
  Sender: FDA-Public Use
  Company Number: None

PATIENT
  Age: 65 Year
  Sex: Male
  Weight: 60.6 kg

DRUGS (1)
  1. RISPERIDONE. [Suspect]
     Active Substance: RISPERIDONE
     Indication: DEPRESSION
     Route: 048
     Dates: start: 20150623, end: 20150815

REACTIONS (7)
  - Feeling abnormal [None]
  - Vomiting [None]
  - Fear [None]
  - Sedation [None]
  - Suicide attempt [None]
  - Nausea [None]
  - Overdose [None]

NARRATIVE: CASE EVENT DATE: 20150815
